FAERS Safety Report 6519416-2 (Version None)
Quarter: 2009Q4

REPORT INFORMATION
  Report Type: 
  Country: None (occurrence: None)
  Receive Date: 20091228
  Receipt Date: 20091214
  Transmission Date: 20100525
  Serious: Yes (Hospitalization)
  Sender: FDA-Public Use
  Company Number: US-MERCK-0909USA02873

PATIENT
  Sex: Female

DRUGS (2)
  1. JANUVIA [Suspect]
     Route: 048
  2. HUMALOG [Concomitant]
     Route: 065
     Dates: start: 20090717

REACTIONS (2)
  - CARDIAC FAILURE CONGESTIVE [None]
  - HYPERSENSITIVITY [None]
